FAERS Safety Report 5188735-7 (Version None)
Quarter: 2006Q4

REPORT INFORMATION
  Report Type: 
  Country: None (occurrence: None)
  Receive Date: 20061214
  Receipt Date: 20061201
  Transmission Date: 20070319
  Serious: Yes (Other)
  Sender: FDA-Public Use
  Company Number: 2006150108

PATIENT
  Age: 47 Year
  Sex: Female
  Weight: 77.1115 kg

DRUGS (25)
  1. LOPID [Suspect]
     Indication: BLOOD CHOLESTEROL INCREASED
     Dosage: 1200 MG (600 MG, 2 IN 1 D)
     Dates: start: 20061201, end: 20061201
  2. LOPID [Suspect]
     Indication: BLOOD TRIGLYCERIDES INCREASED
     Dosage: 1200 MG (600 MG, 2 IN 1 D)
     Dates: start: 20061201, end: 20061201
  3. LIDODERM PATCH (LIDOCAINE HYDROCHLORIDE) [Concomitant]
  4. DURAGESIC-100 [Concomitant]
  5. SPIRIVA [Concomitant]
  6. FLOVENT [Concomitant]
  7. ALBUTEROL [Concomitant]
  8. PRILOSEC [Concomitant]
  9. ERYTHROMYCIN [Concomitant]
  10. NEURONTIN [Concomitant]
  11. POTASSIUM ACETATE [Concomitant]
  12. INDERAL [Concomitant]
  13. RESTORIL [Concomitant]
  14. PLAVIX [Concomitant]
  15. VARENICLINE TARTRATE (VARENICLINE) [Concomitant]
  16. EPINEPHRINE [Concomitant]
  17. NITROGLYCERIN [Concomitant]
  18. LYRICA [Concomitant]
  19. EVISTA [Concomitant]
  20. PROMETHAZINE HCL [Concomitant]
  21. KEPPRA [Concomitant]
  22. LASIX [Concomitant]
  23. EFFEXOR [Concomitant]
  24. ZANAFLEX [Concomitant]
  25. FIORICET [Concomitant]

REACTIONS (3)
  - CHEST DISCOMFORT [None]
  - DYSPNOEA [None]
  - OROPHARYNGEAL SWELLING [None]
